FAERS Safety Report 15263649 (Version 2)
Quarter: 2024Q3

REPORT INFORMATION
  Report Type: Spontaneous
  Country: CA (occurrence: CA)
  Receive Date: 20180810
  Receipt Date: 20240802
  Transmission Date: 20241016
  Serious: Yes (Other)
  Sender: ALKEM
  Company Number: CA-ALKEM LABORATORIES LIMITED-CA-ALKEM-2018-00927

PATIENT
  Age: 2 Year
  Sex: Male

DRUGS (1)
  1. LAMOTRIGINE [Suspect]
     Active Substance: LAMOTRIGINE
     Indication: Accidental exposure to product
     Dosage: 0.8 G, (61.6 MG/KG)
     Route: 065

REACTIONS (9)
  - Generalised tonic-clonic seizure [Unknown]
  - Seizure [Unknown]
  - Overdose [Unknown]
  - Toxicity to various agents [Unknown]
  - Hypertonia [Unknown]
  - Muscular weakness [Unknown]
  - Coordination abnormal [Unknown]
  - Ataxia [Unknown]
  - Tremor [Unknown]
